FAERS Safety Report 18286414 (Version 1)
Quarter: 2020Q3

REPORT INFORMATION
  Report Type: Other
  Country: CA (occurrence: CA)
  Receive Date: 20200920
  Receipt Date: 20200920
  Transmission Date: 20201103
  Serious: Yes (Hospitalization, Other)
  Sender: FDA-Public Use
  Company Number: CA-APOTEX-2020AP017904

PATIENT
  Age: 62 Year
  Sex: Female

DRUGS (10)
  1. ACYCLOVIR. [Suspect]
     Active Substance: ACYCLOVIR
     Indication: STOMATITIS
     Dosage: UNK
     Route: 065
  2. REVOLADE [Suspect]
     Active Substance: ELTROMBOPAG
     Dosage: 25 MILLIGRAM
     Route: 048
  3. ESTRADIOL;MEDROXYPROGESTERONE [Concomitant]
     Indication: PRODUCT USED FOR UNKNOWN INDICATION
     Dosage: 10 MILLIGRAM
     Route: 065
  4. CICLOSPORIN [Concomitant]
     Active Substance: CYCLOSPORINE
     Indication: PRODUCT USED FOR UNKNOWN INDICATION
     Dosage: 225 MILLIGRAM, BID
     Route: 048
  5. REVOLADE [Suspect]
     Active Substance: ELTROMBOPAG
     Indication: APLASTIC ANAEMIA
     Dosage: 150 MILLIGRAM, QD
     Route: 048
  6. PANTOPRAZOLE [Concomitant]
     Active Substance: PANTOPRAZOLE
     Indication: PRODUCT USED FOR UNKNOWN INDICATION
     Dosage: 40 MILLIGRAM, BID
     Route: 048
  7. ACYCLOVIR. [Suspect]
     Active Substance: ACYCLOVIR
     Indication: GINGIVITIS
  8. REVOLADE [Suspect]
     Active Substance: ELTROMBOPAG
     Dosage: 50 UNK
     Route: 048
  9. ACYCLOVIR. [Suspect]
     Active Substance: ACYCLOVIR
     Indication: GINGIVAL BLEEDING
  10. BOTULINUM TOXIN TYPE A [Concomitant]
     Active Substance: BOTULINUM TOXIN TYPE A
     Indication: ACOUSTIC NEUROMA
     Dosage: UNK.1 EVERY 3 MONTH
     Route: 065

REACTIONS (18)
  - Dry mouth [Unknown]
  - Gingivitis [Unknown]
  - Platelet count decreased [Unknown]
  - Pyrexia [Unknown]
  - Headache [Unknown]
  - Nausea [Unknown]
  - Gingival swelling [Unknown]
  - Stomatitis [Unknown]
  - Influenza [Unknown]
  - Chest discomfort [Unknown]
  - Heart rate increased [Unknown]
  - Haemoglobin decreased [Unknown]
  - Urinary tract infection [Unknown]
  - Cough [Unknown]
  - Dysphagia [Unknown]
  - Dysphonia [Unknown]
  - Gingival bleeding [Unknown]
  - Malaise [Unknown]
